FAERS Safety Report 10048208 (Version 3)
Quarter: 2014Q2

REPORT INFORMATION
  Report Type: Spontaneous
  Country: US (occurrence: US)
  Receive Date: 20140331
  Receipt Date: 20140604
  Transmission Date: 20141212
  Serious: No
  Sender: FDA-Public Use
  Company Number: US-PFIZER INC-2014088874

PATIENT
  Age: 33 Year
  Sex: Male

DRUGS (1)
  1. XANAX [Suspect]
     Dosage: UNK, 4X/DAY

REACTIONS (7)
  - Activities of daily living impaired [Not Recovered/Not Resolved]
  - Asthenia [Not Recovered/Not Resolved]
  - Throat tightness [Unknown]
  - Somnolence [Unknown]
  - Impaired work ability [Unknown]
  - Anger [Unknown]
  - Mood altered [Unknown]
